FAERS Safety Report 4340601-2 (Version None)
Quarter: 2004Q2

REPORT INFORMATION
  Report Type: 
  Country: None (occurrence: None)
  Receive Date: 20040414
  Receipt Date: 20040401
  Transmission Date: 20050107
  Serious: Yes (Other)
  Sender: FDA-Public Use
  Company Number: 2004022547

PATIENT
  Age: 55 Year
  Sex: Female

DRUGS (3)
  1. ELETRIPTAN (ELETRIPTAN) [Suspect]
     Indication: MIGRAINE
     Dosage: 40 MG (DAILY), ORAL
     Route: 048
     Dates: start: 20031201, end: 20031201
  2. CYCLO-PROGYNOVA (ESTRADIOL VALERATE, LEVONORGESTREL) [Concomitant]
  3. ESTRADIOL [Concomitant]

REACTIONS (1)
  - VITREOUS DETACHMENT [None]
